FAERS Safety Report 16124153 (Version 1)
Quarter: 2019Q2

REPORT INFORMATION
  Report Type: Spontaneous
  Country: US (occurrence: US)
  Receive Date: 20190327
  Receipt Date: 20190327
  Transmission Date: 20190711
  Serious: No
  Sender: FDA-Public Use
  Company Number: US-IBSA PHARMA-TIR-2018-1221

PATIENT
  Age: 72 Year
  Sex: Female
  Weight: 43.13 kg

DRUGS (2)
  1. TIROSINT [Suspect]
     Active Substance: LEVOTHYROXINE SODIUM
     Indication: HYPOTHYROIDISM
     Dosage: 112MCG 3 DAYS PER WEEK AND 125MCG 5 DAYS PER WEEK
     Route: 048
     Dates: start: 201809
  2. TIROSINT [Suspect]
     Active Substance: LEVOTHYROXINE SODIUM
     Indication: HYPOTHYROIDISM
     Dosage: 112MCG 3 DAYS PER WEEK AND 125MCG 5 DAYS PER WEEK
     Route: 048
     Dates: start: 201809

REACTIONS (4)
  - Drug level above therapeutic [Unknown]
  - Abdominal discomfort [Unknown]
  - Increased appetite [Unknown]
  - Insomnia [Unknown]

NARRATIVE: CASE EVENT DATE: 201809
